FAERS Safety Report 13969072 (Version 6)
Quarter: 2018Q3

REPORT INFORMATION
  Report Type: Report from Study
  Country: FR (occurrence: FR)
  Receive Date: 20170914
  Receipt Date: 20180711
  Transmission Date: 20181010
  Serious: Yes (Hospitalization, Other)
  Sender: FDA-Public Use
  Company Number: FR-SA-2015SA043732

PATIENT
  Age: 37 Year
  Sex: Male
  Weight: 58 kg

DRUGS (13)
  1. AFLIBERCEPT [Suspect]
     Active Substance: AFLIBERCEPT
     Indication: COLORECTAL CANCER METASTATIC
     Dosage: 300 MG,QCY
     Route: 041
     Dates: start: 20140918, end: 20140918
  2. IRINOTECAN [Suspect]
     Active Substance: IRINOTECAN
     Indication: COLORECTAL CANCER METASTATIC
     Dosage: 360 MG,QCY
     Route: 041
     Dates: start: 20140918, end: 20140918
  3. FLUOROURACIL. [Suspect]
     Active Substance: FLUOROURACIL
     Dosage: 600 MG,QCY
     Route: 040
     Dates: start: 20150211, end: 20150211
  4. FLUOROURACIL. [Suspect]
     Active Substance: FLUOROURACIL
     Dosage: 3500 MG,QCY
     Route: 041
     Dates: start: 20150211, end: 20150211
  5. FLUOROURACIL. [Suspect]
     Active Substance: FLUOROURACIL
     Indication: COLORECTAL CANCER METASTATIC
     Dosage: 800 MG,QCY
     Route: 040
     Dates: start: 20140918, end: 20140918
  6. FOLINIC ACID [Suspect]
     Active Substance: LEUCOVORIN
     Indication: COLORECTAL CANCER METASTATIC
     Dosage: 400 MG,QCY
     Route: 041
     Dates: start: 20140918, end: 20140918
  7. SPASFON [PHLOROGLUCINOL] [Concomitant]
     Dosage: UNK UNK,UNK
     Route: 065
     Dates: start: 2014
  8. PARACETAMOL [Concomitant]
     Active Substance: ACETAMINOPHEN
     Dosage: UNK, UNK
     Route: 065
     Dates: start: 20141110
  9. FOLINIC ACID [Suspect]
     Active Substance: LEUCOVORIN
     Dosage: 360 MG,QCY
     Route: 041
     Dates: start: 20150211, end: 20150211
  10. FLUOROURACIL. [Suspect]
     Active Substance: FLUOROURACIL
     Dosage: 4800 MG,QCY
     Route: 041
     Dates: start: 20140918, end: 20140918
  11. IRINOTECAN [Suspect]
     Active Substance: IRINOTECAN
     Dosage: 260 MG,QCY
     Route: 041
     Dates: start: 20150211, end: 20150211
  12. CONTRAMAL [Concomitant]
     Active Substance: TRAMADOL HYDROCHLORIDE
     Dosage: UNK
     Route: 065
     Dates: start: 20150221, end: 20150310
  13. AFLIBERCEPT [Suspect]
     Active Substance: AFLIBERCEPT
     Dosage: 240 MG,QCY
     Route: 041
     Dates: start: 20150211, end: 20150211

REACTIONS (2)
  - Peritonitis [Recovered/Resolved]
  - Intestinal perforation [Recovered/Resolved]

NARRATIVE: CASE EVENT DATE: 20150221
